FAERS Safety Report 14612325 (Version 1)
Quarter: 2018Q1

REPORT INFORMATION
  Report Type: Spontaneous
  Country: US (occurrence: US)
  Receive Date: 20180307
  Receipt Date: 20180307
  Transmission Date: 20180509
  Serious: Yes (Hospitalization)
  Sender: FDA-Public Use
  Company Number: None

PATIENT
  Age: 25 Year
  Sex: Female
  Weight: 74.7 kg

DRUGS (1)
  1. BUSPIRONE [Suspect]
     Active Substance: BUSPIRONE HYDROCHLORIDE
     Indication: ANXIETY
     Dosage: ?          QUANTITY:1 TABLET(S);?
     Route: 048

REACTIONS (13)
  - Paralysis [None]
  - Pharyngeal oedema [None]
  - Insomnia [None]
  - Dyspnoea [None]
  - Hyperhidrosis [None]
  - Anxiety [None]
  - Gastrooesophageal reflux disease [None]
  - Anxiety disorder [None]
  - Panic attack [None]
  - Agitation [None]
  - Palpitations [None]
  - Muscle tightness [None]
  - Nerve injury [None]

NARRATIVE: CASE EVENT DATE: 20180302
